FAERS Safety Report 5808327-3 (Version None)
Quarter: 2008Q3

REPORT INFORMATION
  Report Type: 
  Country: None (occurrence: None)
  Receive Date: 20080709
  Receipt Date: 20080623
  Transmission Date: 20090109
  Serious: Yes (Hospitalization)
  Sender: FDA-Public Use
  Company Number: 2008015102

PATIENT
  Age: 75 Year
  Sex: Female

DRUGS (9)
  1. CETIRIZINE HCL [Suspect]
     Dosage: ORAL
     Route: 048
  2. HYDROXYZINE [Suspect]
     Dosage: ORAL
     Route: 048
  3. FLURAZEPAM HCL [Suspect]
     Dosage: ORAL
     Route: 048
  4. DIAZEPAM [Suspect]
     Dosage: ORAL
     Route: 048
  5. LEVOTHYROXINE SODIUM [Suspect]
     Dosage: ORAL
     Route: 048
  6. DIPYRONE TAB [Suspect]
     Dosage: ORAL
     Route: 048
  7. TRAMADOL HCL [Suspect]
     Dosage: ORAL
     Route: 048
  8. ZOLPIDEM TARTRATE [Suspect]
     Dosage: ORAL
     Route: 048
  9. NALOXONE/OXYCODONE (NALOXONE, OXYCODONE) [Suspect]

REACTIONS (6)
  - BRADYPNOEA [None]
  - CARDIAC ARREST [None]
  - COMA [None]
  - HYPOTONIA [None]
  - MULTIPLE DRUG OVERDOSE INTENTIONAL [None]
  - SUICIDE ATTEMPT [None]
